FAERS Safety Report 9856704 (Version 1)
Quarter: 2014Q1

REPORT INFORMATION
  Report Type: Spontaneous
  Country: US (occurrence: US)
  Receive Date: 20140130
  Receipt Date: 20140130
  Transmission Date: 20141002
  Serious: Yes (Other)
  Sender: FDA-Public Use
  Company Number: US-GLAXOSMITHKLINE-A1058802A

PATIENT
  Age: 82 Year
  Sex: Male

DRUGS (19)
  1. ADVAIR HFA [Suspect]
     Indication: CHRONIC OBSTRUCTIVE PULMONARY DISEASE
     Dosage: 1PUFF PER DAY
     Route: 055
     Dates: start: 201301
  2. VENTOLIN [Suspect]
     Indication: EMPHYSEMA
     Dosage: 2PUFF TWICE PER DAY
     Route: 055
     Dates: start: 2009
  3. SPIRIVA [Concomitant]
  4. VERAMYST [Concomitant]
  5. BABY ASPIRIN [Concomitant]
  6. GLUCOSAMINE SULFATE [Concomitant]
  7. FERROUS SULFATE [Concomitant]
  8. SENIOR MULTIVITAMIN [Concomitant]
  9. VITAMIN E [Concomitant]
  10. CALTRATE [Concomitant]
  11. REFRESH TEARS [Concomitant]
  12. SYSTANE [Concomitant]
  13. IPRATROPIUM BROMIDE [Concomitant]
  14. GUAIFENESIN [Concomitant]
  15. CETIRIZINE [Concomitant]
  16. OXYGEN [Concomitant]
  17. PNEUMONIA VACCINE [Concomitant]
  18. METOPROLOL [Concomitant]
  19. CPAP [Concomitant]

REACTIONS (9)
  - Pneumonia [Unknown]
  - Arthralgia [Unknown]
  - Feeling abnormal [Unknown]
  - Sputum increased [Unknown]
  - Cough [Unknown]
  - Sneezing [Unknown]
  - Rhinorrhoea [Unknown]
  - Adverse event [Unknown]
  - Chest discomfort [Unknown]
